FAERS Safety Report 16033874 (Version 1)
Quarter: 2019Q1

REPORT INFORMATION
  Report Type: Other
  Country: FR (occurrence: FR)
  Receive Date: 20190305
  Receipt Date: 20190305
  Transmission Date: 20190418
  Serious: Yes (Life-Threatening, Hospitalization, Other)
  Sender: FDA-Public Use
  Company Number: FR-APOTEX-2019AP008683

PATIENT
  Age: 85 Year
  Sex: Female
  Weight: 62 kg

DRUGS (14)
  1. KARDEGIC [Suspect]
     Active Substance: ASPIRIN DL-LYSINE
     Indication: CORONARY ARTERIAL STENT INSERTION
     Dosage: 75 MG,QD
     Route: 048
     Dates: start: 20090901
  2. APIXABAN [Suspect]
     Active Substance: APIXABAN
     Indication: DEEP VEIN THROMBOSIS
     Dosage: 5 MG, BID
     Route: 048
     Dates: start: 20171031, end: 20171102
  3. ACETYLSALICYLIC ACID [Suspect]
     Active Substance: ASPIRIN
     Indication: CORONARY ARTERIAL STENT INSERTION
     Dosage: 75 MG, UNK
     Route: 048
     Dates: start: 20090901
  4. CALCIPARINE [Suspect]
     Active Substance: HEPARIN CALCIUM
     Indication: DEEP VEIN THROMBOSIS
     Dosage: UNK UNK,UNK
     Route: 042
     Dates: start: 20171027
  5. PLAVIX [Suspect]
     Active Substance: CLOPIDOGREL BISULFATE
     Indication: CORONARY ARTERIAL STENT INSERTION
     Dosage: UNK UNK,UNK
     Route: 048
     Dates: start: 20171026
  6. CLOPIDOGREL [Suspect]
     Active Substance: CLOPIDOGREL BISULFATE
     Indication: CORONARY ARTERIAL STENT INSERTION
     Dosage: 75 MG,QD
     Route: 048
     Dates: start: 20090901
  7. ESOMEPRAZOLE. [Concomitant]
     Active Substance: ESOMEPRAZOLE MAGNESIUM
     Indication: PROPHYLAXIS
  8. ESOMEPRAZOLE. [Concomitant]
     Active Substance: ESOMEPRAZOLE MAGNESIUM
     Indication: ANTIPLATELET THERAPY
     Dosage: 40 MG,UNK
     Route: 048
  9. ATENOLOL. [Concomitant]
     Active Substance: ATENOLOL
     Indication: ISCHAEMIC CARDIOMYOPATHY
     Dosage: 50 MG,UNK
     Route: 048
  10. FENOFIBRATE. [Concomitant]
     Active Substance: FENOFIBRATE
     Indication: HYPERTRIGLYCERIDAEMIA
     Dosage: 160 MG,UNK
     Route: 048
  11. FUROSEMIDE. [Concomitant]
     Active Substance: FUROSEMIDE
     Indication: CARDIAC FAILURE CONGESTIVE
  12. CALCIPARINE [Suspect]
     Active Substance: HEPARIN CALCIUM
     Dosage: UNK
     Route: 042
  13. ASPIRIN                            /00002701/ [Suspect]
     Active Substance: ASPIRIN
     Indication: CORONARY ARTERIAL STENT INSERTION
     Dosage: 75 MG, UNK
     Route: 048
     Dates: start: 20090901
  14. FUROSEMIDE. [Concomitant]
     Active Substance: FUROSEMIDE
     Indication: CARDIAC FAILURE
     Dosage: 40 MG,UNK
     Route: 048

REACTIONS (4)
  - Rectosigmoid cancer [Not Recovered/Not Resolved]
  - Adenocarcinoma of colon [Recovering/Resolving]
  - Gastrointestinal haemorrhage [Recovered/Resolved]
  - Colorectal cancer [Unknown]

NARRATIVE: CASE EVENT DATE: 20171102
